FAERS Safety Report 16990835 (Version 2)
Quarter: 2019Q4

REPORT INFORMATION
  Report Type: Spontaneous
  Country: US (occurrence: US)
  Receive Date: 20191104
  Receipt Date: 20191121
  Transmission Date: 20200122
  Serious: Yes (Other)
  Sender: FDA-Public Use
  Company Number: US-PFIZER INC-2019472664

PATIENT
  Age: 62 Year
  Sex: Female

DRUGS (1)
  1. BOSULIF [Suspect]
     Active Substance: BOSUTINIB MONOHYDRATE
     Indication: CHRONIC MYELOID LEUKAEMIA
     Dosage: UNK

REACTIONS (9)
  - Hepatic cirrhosis [Unknown]
  - Neoplasm progression [Unknown]
  - Vomiting [Unknown]
  - Product dose omission [Unknown]
  - Dyspareunia [Unknown]
  - Diarrhoea [Unknown]
  - Oesophageal stenosis [Unknown]
  - Nausea [Unknown]
  - Malaise [Unknown]
